FAERS Safety Report 20674780 (Version 2)
Quarter: 2022Q2

REPORT INFORMATION
  Report Type: Spontaneous
  Country: EG (occurrence: EG)
  Receive Date: 20220405
  Receipt Date: 20220426
  Transmission Date: 20220721
  Serious: Yes (Death, Hospitalization)
  Sender: FDA-Public Use
  Company Number: EG-PFIZER INC-202200462060

PATIENT
  Age: 70 Year
  Sex: Female

DRUGS (6)
  1. IBRANCE [Suspect]
     Active Substance: PALBOCICLIB
     Indication: Breast cancer
     Dosage: DAILY FOR 3 WEEKS ON AND 1 WEEK OFF
  2. FEMARA [Concomitant]
     Active Substance: LETROZOLE
     Dosage: 1 DF, DAILY
  3. OSTEOCARE [CALCIUM;COLECALCIFEROL;MAGNESIUM;ZINC] [Concomitant]
     Dosage: 1 DF, DAILY
  4. XGEVA [Concomitant]
     Active Substance: DENOSUMAB
     Dosage: ONE VIAL EVERY 3 MONTHS
     Route: 058
  5. NEXIUM I.V. [Concomitant]
     Active Substance: ESOMEPRAZOLE SODIUM
     Dosage: BEFORE BREAKFAST WITH HALF AN HOUR
  6. NEXICURE [Concomitant]
     Dosage: BEFORE BREAKFAST WITH HALF AN HOUR

REACTIONS (2)
  - Death [Fatal]
  - Decreased immune responsiveness [Unknown]
